FAERS Safety Report 7628651-1 (Version None)
Quarter: 2011Q3

REPORT INFORMATION
  Report Type: 
  Country: None (occurrence: None)
  Receive Date: 20110722
  Receipt Date: 20110711
  Transmission Date: 20111222
  Serious: Yes (Hospitalization)
  Sender: FDA-Public Use
  Company Number: NL-JNJFOC-20110612378

PATIENT
  Sex: Female

DRUGS (8)
  1. ANTIBIOTICS [Concomitant]
     Indication: CROHN'S DISEASE
  2. ACETAMINOPHEN [Concomitant]
  3. MORPHINE [Concomitant]
  4. REMICADE [Suspect]
     Route: 042
     Dates: start: 20101011
  5. REMICADE [Suspect]
     Indication: CROHN'S DISEASE
     Route: 042
  6. REMICADE [Suspect]
     Route: 042
     Dates: start: 20090210
  7. TRAMADOL HCL [Concomitant]
  8. REMICADE [Suspect]
     Route: 042
     Dates: start: 20110516

REACTIONS (2)
  - ANAL FISTULA [None]
  - ANAL ABSCESS [None]
